FAERS Safety Report 4314965-X (Version None)
Quarter: 2004Q1

REPORT INFORMATION
  Report Type: 
  Country: None (occurrence: None)
  Receive Date: 20040310
  Receipt Date: 20040301
  Transmission Date: 20041129
  Serious: Yes (Hospitalization)
  Sender: FDA-Public Use
  Company Number: FR-BRISTOL-MYERS SQUIBB COMPANY-12523023

PATIENT
  Age: 58 Year
  Sex: Female

DRUGS (2)
  1. MEGACE [Suspect]
     Indication: BREAST CANCER
     Route: 048
     Dates: end: 20040225
  2. FEMARA [Suspect]
     Dosage: DOSAGE FORM = ONE TABLET

REACTIONS (1)
  - PYREXIA [None]
